FAERS Safety Report 23458933 (Version 1)
Quarter: 2024Q1

REPORT INFORMATION
  Report Type: Spontaneous
  Country: FR (occurrence: FR)
  Receive Date: 20240131
  Receipt Date: 20240131
  Transmission Date: 20240410
  Serious: Yes (Other)
  Sender: FDA-Public Use
  Company Number: FR-JNJFOC-20240157336

PATIENT
  Sex: Male

DRUGS (1)
  1. ERDAFITINIB [Suspect]
     Active Substance: ERDAFITINIB
     Indication: Product used for unknown indication
     Dosage: 8MG PER DAY
     Route: 065

REACTIONS (4)
  - Xerophthalmia [Recovering/Resolving]
  - Nail disorder [Recovering/Resolving]
  - Mucosal inflammation [Recovering/Resolving]
  - Asthenia [Recovering/Resolving]
